FAERS Safety Report 10733405 (Version 2)
Quarter: 2015Q4

REPORT INFORMATION
  Report Type: Report from Study
  Country: PL (occurrence: PL)
  Receive Date: 20150123
  Receipt Date: 20151231
  Transmission Date: 20160304
  Serious: Yes (Death, Life-Threatening, Hospitalization, Other)
  Sender: FDA-Public Use
  Company Number: PL-ASTRAZENECA-2015SE07077

PATIENT
  Age: 29561 Day
  Sex: Male

DRUGS (9)
  1. FUROSEMIDE. [Concomitant]
     Active Substance: FUROSEMIDE
  2. CLEXANE [Concomitant]
     Active Substance: ENOXAPARIN SODIUM
  3. ACETYLSALICYLIC ACID [Suspect]
     Active Substance: ASPIRIN
     Indication: THROMBOSIS PROPHYLAXIS
     Dosage: 75 MG DAILY, MAINTENANCE DOSE, NON-AZ DRUG
     Route: 048
  4. DEXAVEN [Concomitant]
     Active Substance: DEXAMETHASONE
  5. OXODIL [Concomitant]
     Active Substance: FORMOTEROL FUMARATE
  6. MIFLONIDE [Concomitant]
     Active Substance: BUDESONIDE
  7. THEOSPIREX [Concomitant]
     Active Substance: THEOPHYLLINE ANHYDROUS
  8. ATROVENT [Concomitant]
     Active Substance: IPRATROPIUM BROMIDE
  9. AZD6140 [Suspect]
     Active Substance: TICAGRELOR
     Indication: THROMBOSIS PROPHYLAXIS
     Route: 048
     Dates: start: 20141127

REACTIONS (2)
  - Chronic obstructive pulmonary disease [Recovered/Resolved]
  - Respiratory arrest [Fatal]

NARRATIVE: CASE EVENT DATE: 20141208
